FAERS Safety Report 6146513-6 (Version None)
Quarter: 2009Q2

REPORT INFORMATION
  Report Type: 
  Country: None (occurrence: None)
  Receive Date: 20090403
  Receipt Date: 20090403
  Transmission Date: 20091009
  Serious: No
  Sender: FDA-Public Use
  Company Number: None

PATIENT
  Sex: Female
  Weight: 56.6996 kg

DRUGS (1)
  1. CRESTOR [Suspect]
     Indication: BLOOD CHOLESTEROL INCREASED
     Dosage: 1 A DAY 3 A WEEK
     Dates: start: 20081210, end: 20090306

REACTIONS (4)
  - CHEST PAIN [None]
  - FEELING HOT [None]
  - PAIN IN EXTREMITY [None]
  - RASH [None]
